FAERS Safety Report 14564028 (Version 1)
Quarter: 2018Q1

REPORT INFORMATION
  Report Type: Report from Study
  Country: US (occurrence: US)
  Receive Date: 20180222
  Receipt Date: 20180222
  Transmission Date: 20180509
  Serious: Yes (Death, Other)
  Sender: FDA-Public Use
  Company Number: US-CELGENEUS-163-21880-07051273

PATIENT

DRUGS (4)
  1. ASA [Concomitant]
     Active Substance: ASPIRIN
     Indication: PROPHYLAXIS
     Route: 048
  2. PROTON PUMP INHIBITORS [Concomitant]
     Active Substance: UNSPECIFIED INGREDIENT
     Indication: PRODUCT USED FOR UNKNOWN INDICATION
     Route: 065
  3. REVLIMID [Suspect]
     Active Substance: LENALIDOMIDE
     Indication: AMYLOIDOSIS
     Dosage: 25 MILLIGRAM
     Route: 048
  4. DEXAMETHASONE. [Suspect]
     Active Substance: DEXAMETHASONE
     Indication: AMYLOIDOSIS
     Dosage: 10-20MG
     Route: 065

REACTIONS (21)
  - Cerebrovascular accident [Unknown]
  - Anaemia [Unknown]
  - Amyloidosis [Fatal]
  - Fatigue [Unknown]
  - Dizziness [Unknown]
  - Arrhythmia [Fatal]
  - Renal impairment [Unknown]
  - Rash [Unknown]
  - Performance status decreased [Unknown]
  - Thrombocytopenia [Unknown]
  - Deep vein thrombosis [Unknown]
  - Blood creatinine abnormal [Unknown]
  - Leukopenia [Unknown]
  - End stage renal disease [Unknown]
  - Respiratory tract infection [Unknown]
  - Embolism [Unknown]
  - Cardiac arrest [Fatal]
  - Neutropenia [Unknown]
  - Bone marrow failure [Unknown]
  - Hypoalbuminaemia [Unknown]
  - Muscle spasms [Unknown]
